FAERS Safety Report 12964032 (Version 2)
Quarter: 2019Q2

REPORT INFORMATION
  Report Type: Report from Study
  Country: MX (occurrence: MX)
  Receive Date: 20161122
  Receipt Date: 20190513
  Transmission Date: 20190711
  Serious: Yes (Other)
  Sender: FDA-Public Use
  Company Number: PHHY2016MX159707

PATIENT
  Sex: Female
  Weight: 71 kg

DRUGS (1)
  1. CO-DIOVAN [Suspect]
     Active Substance: HYDROCHLOROTHIAZIDE\VALSARTAN
     Indication: CEREBRAL INFARCTION
     Dosage: 1 DF (HYDROCHLOROTHIAZIDE 12.5 MG, VALSARTAN 160 MG), QD (4 OR 5 YEARS AGO)
     Route: 048

REACTIONS (5)
  - Cerebral palsy [Unknown]
  - Dysstasia [Unknown]
  - Joint destruction [Unknown]
  - Product use in unapproved indication [Not Recovered/Not Resolved]
  - Osteoarthritis [Unknown]
